FAERS Safety Report 4792365-6 (Version None)
Quarter: 2005Q4

REPORT INFORMATION
  Report Type: 
  Country: None (occurrence: None)
  Receive Date: 20051010
  Receipt Date: 20050812
  Transmission Date: 20060501
  Serious: Yes (Hospitalization)
  Sender: FDA-Public Use
  Company Number: JP-BOEHRINGER INGELHEIM PHARMACEUTICALS, INC.-2005-BP-15012NB

PATIENT
  Sex: Female
  Weight: 54.9 kg

DRUGS (9)
  1. MICARDIS [Suspect]
     Indication: HYPERTENSION
     Route: 048
     Dates: start: 20050803, end: 20050810
  2. ADALAT [Suspect]
     Indication: HYPERTENSION
     Route: 048
     Dates: start: 20050802, end: 20050810
  3. CIBENOL [Suspect]
     Indication: ATRIAL FIBRILLATION
     Route: 048
     Dates: start: 20050701, end: 20050803
  4. DIGOXIN [Suspect]
     Indication: ATRIAL FIBRILLATION
     Route: 048
     Dates: start: 20050804, end: 20050810
  5. WARFARIN [Suspect]
     Indication: ATRIAL FIBRILLATION
     Route: 048
     Dates: start: 20050804, end: 20050810
  6. NIVADIL [Suspect]
     Indication: HYPERTENSION
     Route: 048
     Dates: end: 20050802
  7. LONGES [Suspect]
     Indication: HYPERTENSION
     Route: 048
     Dates: end: 20050802
  8. SUNRYTHM [Suspect]
     Indication: ATRIAL FIBRILLATION
     Route: 042
     Dates: start: 20050808, end: 20050808
  9. NOVOLINE R [Concomitant]
     Indication: DIABETES MELLITUS
     Route: 058
     Dates: start: 20050802

REACTIONS (1)
  - LIVER DISORDER [None]
